FAERS Safety Report 8596854-8 (Version None)
Quarter: 2012Q3

REPORT INFORMATION
  Report Type: 
  Country: None (occurrence: None)
  Receive Date: 20120815
  Receipt Date: 20120806
  Transmission Date: 20120928
  Serious: Yes (Other)
  Sender: FDA-Public Use
  Company Number: CHPA2012US013949

PATIENT
  Age: 54 Year
  Sex: Female

DRUGS (5)
  1. EXCEDRIN EXTRA STRENGTH TABLETS [Suspect]
     Dosage: HALF THE BOTTLE
     Route: 048
  2. EXCEDRIN EXTRA STRENGTH TABLETS [Suspect]
     Indication: BACK PAIN
     Dosage: 4 DF, A DAY
     Route: 048
     Dates: end: 20120127
  3. NEXIUM [Concomitant]
     Dosage: UNK, UNK
     Route: 048
  4. ANTIDEPRESSANTS [Concomitant]
     Indication: DEPRESSION
     Dosage: UNK, UNK
     Route: 048
  5. HORMONES [Concomitant]
     Dosage: UNK, UNK
     Route: 048

REACTIONS (8)
  - LOSS OF CONSCIOUSNESS [None]
  - BLOOD CHOLESTEROL INCREASED [None]
  - CRYING [None]
  - INCORRECT DRUG ADMINISTRATION DURATION [None]
  - OVERDOSE [None]
  - HEAD INJURY [None]
  - NEOPLASM [None]
  - CONFUSIONAL STATE [None]
